FAERS Safety Report 23172885 (Version 1)
Quarter: 2023Q4

REPORT INFORMATION
  Report Type: Spontaneous
  Country: CA (occurrence: CA)
  Receive Date: 20231110
  Receipt Date: 20231110
  Transmission Date: 20240109
  Serious: Yes (Death)
  Sender: FDA-Public Use
  Company Number: CA-PFIZER INC-2021250988

PATIENT
  Age: 71 Year
  Sex: Male
  Weight: 60 kg

DRUGS (8)
  1. RUXIENCE [Suspect]
     Active Substance: RITUXIMAB-PVVR
     Indication: Sjogren^s syndrome
     Dosage: 1000 MG, AT DAY 1 AND DAY 15
     Route: 042
     Dates: start: 20210511
  2. RUXIENCE [Suspect]
     Active Substance: RITUXIMAB-PVVR
     Indication: Interstitial lung disease
     Dosage: 1000 MG, AT DAY 1 AND DAY 15
     Route: 042
     Dates: start: 20210525
  3. RUXIENCE [Suspect]
     Active Substance: RITUXIMAB-PVVR
     Dosage: 1000 MG, AT DAY 1 AND DAY 15
     Route: 042
     Dates: start: 20211221
  4. RUXIENCE [Suspect]
     Active Substance: RITUXIMAB-PVVR
     Dosage: 1000 MG, AT DAY 1 AND DAY 15
     Route: 042
     Dates: start: 20220104
  5. RUXIENCE [Suspect]
     Active Substance: RITUXIMAB-PVVR
     Dosage: 1000 MG, AT DAY 1 AND DAY 15
     Route: 042
     Dates: start: 20220721
  6. RUXIENCE [Suspect]
     Active Substance: RITUXIMAB-PVVR
     Dosage: 1000 MG, AT DAY 1 AND DAY 15
     Route: 042
     Dates: start: 20230804
  7. RUXIENCE [Suspect]
     Active Substance: RITUXIMAB-PVVR
     Dosage: 1000 MG, AT DAY 1 AND DAY 15
     Route: 042
     Dates: start: 20230606
  8. RUXIENCE [Suspect]
     Active Substance: RITUXIMAB-PVVR
     Dosage: 1000 MG, AT DAY 1 AND DAY 15
     Route: 042
     Dates: start: 20230620

REACTIONS (3)
  - Death [Fatal]
  - Weight decreased [Unknown]
  - Off label use [Unknown]

NARRATIVE: CASE EVENT DATE: 20231013
